FAERS Safety Report 16410519 (Version 1)
Quarter: 2019Q3

REPORT INFORMATION
  Report Type: Spontaneous
  Country: US (occurrence: US)
  Receive Date: 20190607
  Receipt Date: 20190607
  Transmission Date: 20191004
  Serious: Yes (Hospitalization)
  Sender: FDA-Public Use
  Company Number: None

PATIENT
  Age: 50 Year
  Sex: Female

DRUGS (7)
  1. SUBOXONE MIS 8-2MG [Concomitant]
     Dates: start: 20190514
  2. BENLYSTA [Suspect]
     Active Substance: BELIMUMAB
     Indication: PRODUCT USED FOR UNKNOWN INDICATION
     Dosage: ?          OTHER FREQUENCY:EVERY WEEK;?
     Route: 058
     Dates: start: 20180908
  3. AZITHROMYCIN TABLETS 250MG [Concomitant]
     Dates: start: 20190415
  4. HYDROXYCHLOROQUINE TABLETS 200MG [Concomitant]
     Dates: start: 20190513
  5. PROAIR HFA AER [Concomitant]
     Dates: start: 20190422
  6. POTASSIUM CHLORIDE 10MG ER [Concomitant]
     Dates: start: 20190507
  7. METRONIDAZOLE TABLET 500MG [Concomitant]
     Dates: start: 20190513

REACTIONS (5)
  - Condition aggravated [None]
  - Gastrointestinal disorder [None]
  - Stomatitis [None]
  - Herpes zoster [None]
  - Arthralgia [None]

NARRATIVE: CASE EVENT DATE: 20190522
